FAERS Safety Report 21928818 (Version 1)
Quarter: 2023Q1

REPORT INFORMATION
  Report Type: Spontaneous
  Country: US (occurrence: US)
  Receive Date: 20230131
  Receipt Date: 20230131
  Transmission Date: 20230418
  Serious: Yes (Other)
  Sender: FDA-Public Use
  Company Number: US-NOVOPROD-1016634

PATIENT
  Age: 59 Year
  Sex: Male

DRUGS (4)
  1. OZEMPIC [Suspect]
     Active Substance: SEMAGLUTIDE
     Indication: Product used for unknown indication
     Dosage: 1 MG
     Route: 058
  2. OZEMPIC [Suspect]
     Active Substance: SEMAGLUTIDE
     Dosage: 1 MG
     Route: 058
     Dates: start: 20230103
  3. OZEMPIC [Suspect]
     Active Substance: SEMAGLUTIDE
     Dosage: 2 MG
     Route: 058
     Dates: start: 202210, end: 202212
  4. OZEMPIC [Suspect]
     Active Substance: SEMAGLUTIDE
     Dosage: DIALED HALFWAY ON THE 2 MG PEN TO TRY TO GET A 1 MG DOSE
     Route: 058
     Dates: start: 202210, end: 202210

REACTIONS (7)
  - Gastric bypass [Unknown]
  - Weight decreased [Recovered/Resolved]
  - Abdominal distension [Unknown]
  - Abdominal discomfort [Unknown]
  - Diabetes mellitus inadequate control [Not Recovered/Not Resolved]
  - Intentional device misuse [Recovered/Resolved]
  - Product supply issue [Recovered/Resolved]

NARRATIVE: CASE EVENT DATE: 20221001
